FAERS Safety Report 13996861 (Version 1)
Quarter: 2017Q3

REPORT INFORMATION
  Report Type: Spontaneous
  Country: US (occurrence: US)
  Receive Date: 20170921
  Receipt Date: 20170921
  Transmission Date: 20171128
  Serious: Yes (Hospitalization, Other)
  Sender: FDA-Public Use
  Company Number: PHEH2017US029903

PATIENT
  Age: 65 Year
  Sex: Female

DRUGS (21)
  1. CALCII CARBONAS [Concomitant]
     Indication: MINERAL SUPPLEMENTATION
     Dosage: UNK
     Route: 065
     Dates: start: 201601
  2. MACROGOL [Concomitant]
     Active Substance: POLYETHYLENE GLYCOLS
     Indication: GASTRIC HAEMORRHAGE
     Dosage: UNK
     Route: 065
     Dates: start: 20170619, end: 20170621
  3. ESTAZOLAMUM [Concomitant]
     Indication: SLEEP DISORDER
     Dosage: UNK
     Route: 065
     Dates: start: 20170203
  4. ONDANSETRONUM [Concomitant]
     Active Substance: ONDANSETRON
     Indication: NAUSEA
     Dosage: UNK
     Route: 065
     Dates: start: 201506
  5. ACIDUM ASCORBICUM [Concomitant]
     Indication: PRODUCT USED FOR UNKNOWN INDICATION
     Dosage: UNK
     Route: 065
     Dates: start: 201601
  6. NAPROXENUM [Concomitant]
     Indication: SKIN DISORDER
     Dosage: UNK
     Route: 065
     Dates: start: 20170411
  7. OMEPRAZOLE. [Concomitant]
     Active Substance: OMEPRAZOLE
     Indication: GASTRIC HAEMORRHAGE
     Dosage: UNK
     Route: 065
     Dates: start: 20170618, end: 20170621
  8. THIETHYLPERAZINUM [Concomitant]
     Indication: VOMITING
     Dosage: UNK
     Route: 065
     Dates: start: 20170411
  9. TRAMADOLI HYDROCHLORIDUM [Concomitant]
     Indication: SPINAL PAIN
     Dosage: UNK
     Route: 065
     Dates: start: 201601
  10. ASCORBIC ACID. [Concomitant]
     Active Substance: ASCORBIC ACID
     Indication: GASTRIC HAEMORRHAGE
     Dosage: UNK
     Route: 065
     Dates: start: 20170619, end: 20170621
  11. KALIUM CHLORID [Concomitant]
     Indication: GASTRIC HAEMORRHAGE
     Dosage: UNK
     Route: 065
     Dates: start: 20170619, end: 20170621
  12. DICLOFENAC [Suspect]
     Active Substance: DICLOFENAC
     Indication: PRODUCT USED FOR UNKNOWN INDICATION
     Dosage: UNK
     Route: 048
  13. ESOMEPRAZOLUM [Concomitant]
     Indication: GASTRIC HAEMORRHAGE
     Dosage: UNK
     Route: 065
     Dates: start: 20170619, end: 20170621
  14. MAGNESIUM + B6 [Concomitant]
     Indication: SUPPLEMENTATION THERAPY
     Dosage: UNK
     Route: 065
     Dates: start: 201601
  15. OXYCODONE [Concomitant]
     Active Substance: OXYCODONE
     Indication: GASTRIC HAEMORRHAGE
     Dosage: UNK
     Route: 065
     Dates: start: 20170618, end: 20170619
  16. OMEPRAZOLE. [Concomitant]
     Active Substance: OMEPRAZOLE
     Dosage: UNK
     Route: 065
     Dates: start: 20170621
  17. HYDROXYZINE [Concomitant]
     Active Substance: HYDROXYZINE HYDROCHLORIDE
     Indication: PRODUCT USED FOR UNKNOWN INDICATION
     Dosage: UNK
     Route: 065
     Dates: start: 20170411
  18. HYDROXYZINUM [Concomitant]
     Active Substance: HYDROXYZINE HYDROCHLORIDE
     Indication: SLEEP DISORDER
     Dosage: UNK
     Route: 065
     Dates: start: 201506
  19. SIMETICONUM [Concomitant]
     Indication: GASTRIC HAEMORRHAGE
     Dosage: UNK
     Route: 065
     Dates: start: 20170619, end: 20170621
  20. PARACETAMOLUM [Concomitant]
     Active Substance: ACETAMINOPHEN
     Indication: SPINAL PAIN
     Dosage: UNK
     Dates: start: 201601
  21. GLUCOSE [Concomitant]
     Active Substance: DEXTROSE
     Indication: GASTRIC HAEMORRHAGE
     Dosage: UNK
     Route: 065
     Dates: start: 20170619, end: 20170621

REACTIONS (3)
  - Gastric ulcer haemorrhage [Recovered/Resolved]
  - Haematemesis [Unknown]
  - Anaemia [Unknown]

NARRATIVE: CASE EVENT DATE: 20170618
